FAERS Safety Report 9200146 (Version 1)
Quarter: 2013Q1

REPORT INFORMATION
  Report Type: Report from Study
  Country: RU (occurrence: RU)
  Receive Date: 20130329
  Receipt Date: 20130329
  Transmission Date: 20140127
  Serious: Yes (Other)
  Sender: FDA-Public Use
  Company Number: RU-UCBSA-007192

PATIENT
  Age: 68 Year
  Sex: Female
  Weight: 74 kg

DRUGS (25)
  1. ALPROSTADIL [Suspect]
     Indication: PERIPHERAL ISCHAEMIA
     Route: 042
     Dates: start: 20100211
  2. PROMEDOL 2% [Concomitant]
     Indication: PAIN
     Dosage: 1 ML AS REQUIRED
     Route: 030
     Dates: start: 20100202, end: 20100312
  3. PROMEDOL 2% [Concomitant]
     Indication: PREMEDICATION
     Dosage: 1 ML AS REQUIRED
     Route: 030
     Dates: start: 20100202, end: 20100312
  4. PROMEDOL 2% [Concomitant]
     Indication: PREMEDICATION
     Dosage: 1 ML AS REQUIRED
     Route: 030
     Dates: start: 20100202, end: 20100312
  5. PROMEDOL 2% [Concomitant]
     Indication: PAIN
     Route: 030
     Dates: start: 20100204, end: 20100204
  6. PROMEDOL 2% [Concomitant]
     Indication: PREMEDICATION
     Route: 030
     Dates: start: 20100204, end: 20100204
  7. PROMEDOL 2% [Concomitant]
     Indication: PREMEDICATION
     Route: 030
     Dates: start: 20100204, end: 20100204
  8. PROMEDOL 2% [Concomitant]
     Indication: PAIN
     Route: 030
     Dates: start: 20100215, end: 20100215
  9. PROMEDOL 2% [Concomitant]
     Indication: PREMEDICATION
     Route: 030
     Dates: start: 20100215, end: 20100215
  10. PROMEDOL 2% [Concomitant]
     Indication: PREMEDICATION
     Route: 030
     Dates: start: 20100215, end: 20100215
  11. ANALGIN 50% [Concomitant]
     Indication: PAIN
     Dosage: 2 ML AS NECESSARY
     Route: 030
     Dates: start: 20100202, end: 20100211
  12. ALPRAZOLAM [Concomitant]
     Indication: PAIN
     Dosage: AT NIGHT
     Route: 048
     Dates: start: 20100202, end: 20100311
  13. NICOTINIC ACID [Concomitant]
     Indication: PERIPHERAL ARTERIAL OCCLUSIVE DISEASE
     Route: 030
     Dates: start: 20100202, end: 20100225
  14. ACTOVEGIN [Concomitant]
     Indication: PERIPHERAL ARTERIAL OCCLUSIVE DISEASE
     Route: 041
     Dates: start: 20100202, end: 20100211
  15. ACTROPID [Concomitant]
     Indication: TYPE 2 DIABETES MELLITUS
     Dosage: 8 IE 3 TIMES A DAY
     Route: 058
     Dates: start: 20100204, end: 20100212
  16. ACTROPID [Concomitant]
     Indication: TYPE 2 DIABETES MELLITUS
     Route: 058
     Dates: start: 20100212, end: 20100217
  17. ACTROPID [Concomitant]
     Indication: TYPE 2 DIABETES MELLITUS
     Route: 058
     Dates: start: 20100217, end: 20100303
  18. ACTROPID [Concomitant]
     Indication: TYPE 2 DIABETES MELLITUS
     Dosage: 8 IE THRICE A DAY
     Route: 058
     Dates: start: 20100303, end: 20100305
  19. ACTROPID [Concomitant]
     Indication: TYPE 2 DIABETES MELLITUS
     Dosage: 10 IE IN THE MORNING, 8 IE IN THE AFTERNOON AND 8 IE AT NIGHT
     Dates: start: 20100305
  20. PROTOFAN [Concomitant]
     Indication: TYPE 2 DIABETES MELLITUS
     Dosage: 12 IE AT NIGHT
     Route: 058
     Dates: start: 20100204, end: 20100212
  21. KETOROL [Concomitant]
     Indication: PAIN
     Dosage: 1 ML AS NECESSARY
     Route: 030
     Dates: start: 20100211
  22. PROTAPHANE [Concomitant]
     Indication: DIABETES MELLITUS
     Route: 058
     Dates: start: 20100212, end: 20100215
  23. PROTAPHANE [Concomitant]
     Indication: DIABETES MELLITUS
     Dosage: 12-14 IU TWICE A DAY
     Route: 058
     Dates: start: 20100215, end: 20100217
  24. PROTAPHANE [Concomitant]
     Indication: DIABETES MELLITUS
     Dosage: 16-18 IU TWICE A DAY
     Route: 058
     Dates: start: 20100217, end: 20100303
  25. PROTAPHANE [Concomitant]
     Indication: DIABETES MELLITUS
     Dosage: 12-16 IE TWICE A DAY
     Route: 058
     Dates: start: 20100303

REACTIONS (1)
  - Bursitis [Recovered/Resolved]
